FAERS Safety Report 6715354-0 (Version None)
Quarter: 2010Q2

REPORT INFORMATION
  Report Type: 
  Country: None (occurrence: None)
  Receive Date: 20100507
  Receipt Date: 20100427
  Transmission Date: 20101027
  Serious: Yes (Life-Threatening)
  Sender: FDA-Public Use
  Company Number: CN-SANOFI-AVENTIS-2010SA022348

PATIENT
  Age: 62 Year
  Sex: Female

DRUGS (4)
  1. ZOLPIDEM [Suspect]
     Indication: INSOMNIA
     Route: 048
     Dates: start: 20100401
  2. ZOLPIDEM [Suspect]
     Indication: INTENTIONAL OVERDOSE
     Route: 048
     Dates: start: 20100401
  3. ZOLPIDEM [Suspect]
     Route: 048
     Dates: start: 20100415, end: 20100415
  4. ZOLPIDEM [Suspect]
     Route: 048
     Dates: start: 20100415, end: 20100415

REACTIONS (2)
  - INTENTIONAL OVERDOSE [None]
  - WHITE BLOOD CELL COUNT INCREASED [None]
